FAERS Safety Report 16573856 (Version 1)
Quarter: 2019Q3

REPORT INFORMATION
  Report Type: Spontaneous
  Country: US (occurrence: US)
  Receive Date: 20190715
  Receipt Date: 20190715
  Transmission Date: 20191004
  Serious: Yes (Death)
  Sender: FDA-Public Use
  Company Number: US-NEPHRON STERILE COMPOUNDING CENTER-2070840

PATIENT
  Age: 50 Year
  Sex: Male
  Weight: 113.18 kg

DRUGS (10)
  1. HEPARIN [Concomitant]
     Active Substance: HEPARIN SODIUM
     Route: 041
  2. LISINOPRIL. [Concomitant]
     Active Substance: LISINOPRIL
     Route: 048
  3. DOCUSATE SODIUM. [Concomitant]
     Active Substance: DOCUSATE SODIUM
     Route: 048
  4. NOREPINEPHRINE. [Concomitant]
     Active Substance: NOREPINEPHRINE
     Route: 042
  5. VANCOMYCIN HYDROCHLORIDE. [Concomitant]
     Active Substance: VANCOMYCIN HYDROCHLORIDE
     Route: 040
  6. ALBUMIN (HUMAN) [Concomitant]
     Active Substance: ALBUMIN HUMAN
     Route: 042
  7. ROCURONIUM [Concomitant]
     Active Substance: ROCURONIUM BROMIDE
     Route: 042
  8. DEXMEDETOMIDINE. [Concomitant]
     Active Substance: DEXMEDETOMIDINE
     Route: 042
  9. DEL NIDO CARDIOPLEGIA [Suspect]
     Active Substance: LIDOCAINE\MAGNESIUM SULFATE\MANNITOL\PLASMA-LYTE A\SODIUM BICARBONATE
     Indication: CORONARY ARTERY BYPASS
     Route: 016
     Dates: start: 20190604, end: 20190604
  10. PROPOFOL. [Concomitant]
     Active Substance: PROPOFOL
     Route: 040

REACTIONS (1)
  - Death [Fatal]
